FAERS Safety Report 8585416-4 (Version None)
Quarter: 2012Q3

REPORT INFORMATION
  Report Type: 
  Country: None (occurrence: None)
  Receive Date: 20120810
  Receipt Date: 20120801
  Transmission Date: 20120928
  Serious: Yes (Hospitalization, Other)
  Sender: FDA-Public Use
  Company Number: US-009507513-1203USA00776

PATIENT

DRUGS (4)
  1. FOSAMAX [Suspect]
     Dosage: 70 MG, UNK
     Route: 048
     Dates: start: 19980801, end: 20090101
  2. FOSAMAX [Suspect]
     Indication: PROPHYLAXIS
     Dosage: 10 MG, UNK
     Route: 048
     Dates: start: 19980801, end: 20090101
  3. OMEGA-3-ACID ETHYL ESTERS [Concomitant]
  4. MK-9278 [Concomitant]

REACTIONS (17)
  - FRACTURE MALUNION [None]
  - EYE DISORDER [None]
  - UTERINE DISORDER [None]
  - HYPERCHOLESTEROLAEMIA [None]
  - HYPERTENSION [None]
  - HYPOTHYROIDISM [None]
  - FEMORAL NECK FRACTURE [None]
  - PROCEDURAL COMPLICATION [None]
  - OSTEOARTHRITIS [None]
  - OSTEOPOROSIS [None]
  - MACULAR DEGENERATION [None]
  - PROCEDURAL HAEMORRHAGE [None]
  - FEMUR FRACTURE [None]
  - FATIGUE [None]
  - DEVICE BREAKAGE [None]
  - FALL [None]
  - GAIT DISTURBANCE [None]
